FAERS Safety Report 7457824-6 (Version None)
Quarter: 2011Q2

REPORT INFORMATION
  Report Type: 
  Country: None (occurrence: None)
  Receive Date: 20110504
  Receipt Date: 20110421
  Transmission Date: 20111010
  Serious: Yes (Hospitalization)
  Sender: FDA-Public Use
  Company Number: PHHY2011NL34289

PATIENT
  Sex: Male

DRUGS (3)
  1. ZOMETA [Suspect]
     Dosage: 4MG/5ML ONCE PER 21 DAYS
     Route: 042
     Dates: start: 20110315
  2. ZOMETA [Suspect]
     Dosage: 4MG/5ML ONCE PER 21 DAYS
     Route: 042
     Dates: start: 20110406
  3. ZOMETA [Suspect]
     Indication: METASTASES TO BONE
     Dosage: 4MG/5ML ONCE PER 21 DAYS (20 MINUTES INTRAVENOUS INFUSION)
     Route: 042
     Dates: start: 20110222

REACTIONS (2)
  - DEHYDRATION [None]
  - CHEST DISCOMFORT [None]
